FAERS Safety Report 13438273 (Version 1)
Quarter: 2017Q2

REPORT INFORMATION
  Report Type: Spontaneous
  Country: US (occurrence: US)
  Receive Date: 20170412
  Receipt Date: 20170412
  Transmission Date: 20170830
  Serious: No
  Sender: FDA-Public Use
  Company Number: US-SA-2017SA022641

PATIENT
  Age: 58 Year
  Sex: Female

DRUGS (1)
  1. ALLEGRA [Suspect]
     Active Substance: FEXOFENADINE HYDROCHLORIDE
     Dosage: MONDAY ONE TABLET AND TUESDAY ONE TABLET AT 7 AM.
     Route: 065

REACTIONS (4)
  - Rhinorrhoea [Unknown]
  - Therapeutic response decreased [Unknown]
  - Unevaluable event [Unknown]
  - Cough [Unknown]
